FAERS Safety Report 17297464 (Version 2)
Quarter: 2020Q2

REPORT INFORMATION
  Report Type: Report from Study
  Country: US (occurrence: US)
  Receive Date: 20200121
  Receipt Date: 20200417
  Transmission Date: 20200713
  Serious: No
  Sender: FDA-Public Use
  Company Number: US-ASTRAZENECA-2020SE05876

PATIENT
  Sex: Male

DRUGS (7)
  1. SULFATRIM PD [Concomitant]
  2. SYNAGIS [Suspect]
     Active Substance: PALIVIZUMAB
     Route: 030
     Dates: start: 20190909
  3. EPANED [Concomitant]
     Active Substance: ENALAPRIL MALEATE
  4. SYNAGIS [Suspect]
     Active Substance: PALIVIZUMAB
     Dosage: 50MG/0.5ML- 15 MG/KG MONTHLY
     Route: 030
  5. OSELTAMIVIR SUS [Concomitant]
  6. FUROSEMIDE. [Concomitant]
     Active Substance: FUROSEMIDE
  7. ASPIRIN. [Concomitant]
     Active Substance: ASPIRIN

REACTIONS (1)
  - Influenza [Recovered/Resolved]

NARRATIVE: CASE EVENT DATE: 20191214
